FAERS Safety Report 6617101 (Version 3)
Quarter: 2018Q4

REPORT INFORMATION
  Report Type: Spontaneous
  Country: IT (occurrence: IT)
  Receive Date: 20080417
  Receipt Date: 20181127
  Transmission Date: 20190205
  Serious: Yes (Hospitalization)
  Sender: FDA-Public Use
  Company Number: IT-ROCHE-557743

PATIENT
  Age: 51 Year
  Sex: Female

DRUGS (5)
  1. MONTELUKAST [Concomitant]
     Active Substance: MONTELUKAST SODIUM
     Indication: ASTHMA
     Route: 048
  2. DIAZEPAM. [Suspect]
     Active Substance: DIAZEPAM
     Indication: INSOMNIA
     Dosage: UNIT DOSE: 60 [DRP]
     Route: 048
  3. IPRATROPIUM [Concomitant]
     Active Substance: IPRATROPIUM
     Indication: ASTHMA
     Dosage: UNIT DOSE=2 PUFF DAILY DOSE=4 PUFF
     Route: 055
  4. TEOFILLINA [Concomitant]
     Indication: ASTHMA
     Dosage: DRUG REPORTED AS TEOFILLIN.
     Route: 048
  5. FENOTEROL [Concomitant]
     Active Substance: FENOTEROL
     Indication: ASTHMA
     Dosage: UNIT DOSE=2 PUFF DAILY DOSE=4 PUFF
     Route: 055

REACTIONS (2)
  - Coma [Recovered/Resolved]
  - Acute respiratory failure [Recovered/Resolved]
